FAERS Safety Report 5763130-8 (Version None)
Quarter: 2008Q2

REPORT INFORMATION
  Report Type: 
  Country: None (occurrence: None)
  Receive Date: 20080609
  Receipt Date: 20080527
  Transmission Date: 20081010
  Serious: Yes (Other)
  Sender: FDA-Public Use
  Company Number: US-ELI_LILLY_AND_COMPANY-US200805005488

PATIENT
  Sex: Male

DRUGS (2)
  1. CYMBALTA [Suspect]
     Indication: OSTEOARTHRITIS
     Dosage: 60 MG, EACH MORNING
     Dates: start: 20070901
  2. NEURONTIN [Concomitant]
     Indication: OSTEOARTHRITIS

REACTIONS (4)
  - BLISTER [None]
  - ERECTILE DYSFUNCTION [None]
  - FATIGUE [None]
  - RASH [None]
